FAERS Safety Report 25352680 (Version 1)
Quarter: 2025Q2

REPORT INFORMATION
  Report Type: Spontaneous
  Country: US (occurrence: None)
  Receive Date: 20250522
  Receipt Date: 20250522
  Transmission Date: 20250717
  Serious: No
  Sender: FDA-CTU
  Company Number: None

PATIENT
  Age: 23 Year
  Sex: Male
  Weight: 108 kg

DRUGS (1)
  1. ZYRTEC [Suspect]
     Active Substance: CETIRIZINE HYDROCHLORIDE
     Indication: Hypersensitivity
     Dosage: OTHER QUANTITY : 1 TABLET(S);?FREQUENCY : DAILY;?
     Route: 048
     Dates: start: 20150101, end: 20220915

REACTIONS (20)
  - Withdrawal syndrome [None]
  - Pruritus [None]
  - Pruritus [None]
  - Pruritus [None]
  - Skin irritation [None]
  - Skin burning sensation [None]
  - Urticaria [None]
  - Sneezing [None]
  - Nonspecific reaction [None]
  - Rhinorrhoea [None]
  - Dizziness [None]
  - Fatigue [None]
  - Brain fog [None]
  - Tremor [None]
  - Acne [None]
  - Dry skin [None]
  - Tooth disorder [None]
  - Weight increased [None]
  - Asthenia [None]
  - Rebound effect [None]

NARRATIVE: CASE EVENT DATE: 20220915
